FAERS Safety Report 4758026-4 (Version None)
Quarter: 2005Q3

REPORT INFORMATION
  Report Type: 
  Country: None (occurrence: None)
  Receive Date: 20050830
  Receipt Date: 20050816
  Transmission Date: 20060218
  Serious: Yes (Hospitalization)
  Sender: FDA-Public Use
  Company Number: 2005PV000518

PATIENT
  Age: 42 Year
  Sex: Female
  Weight: 141.9759 kg

DRUGS (10)
  1. BYETTA [Suspect]
     Indication: DIABETES MELLITUS
     Dosage: 5 MCG; BID; SC
     Route: 058
     Dates: start: 20050721, end: 20050725
  2. LISINOPRIL [Suspect]
     Dosage: 10 MG; QD; PO
     Route: 048
  3. ATENOLOL [Concomitant]
  4. LIPITOR [Concomitant]
  5. METFORMIN [Concomitant]
  6. ACTOS [Concomitant]
  7. SINGULAIR [Concomitant]
  8. ALBUTEROL [Concomitant]
  9. ASPIRIN [Concomitant]
  10. PLAVIX [Concomitant]

REACTIONS (4)
  - ANAEMIA [None]
  - ASCITES [None]
  - OEDEMA PERIPHERAL [None]
  - PANCREATITIS ACUTE [None]
